FAERS Safety Report 18363457 (Version 2)
Quarter: 2020Q4

REPORT INFORMATION
  Report Type: Report from Study
  Country: FR (occurrence: FR)
  Receive Date: 20201009
  Receipt Date: 20201023
  Transmission Date: 20210114
  Serious: Yes (Death, Other)
  Sender: FDA-Public Use
  Company Number: FR-BRISTOL-MYERS SQUIBB COMPANY-BMS-2020-083181

PATIENT
  Age: 86 Year
  Sex: Female

DRUGS (1)
  1. NIVOLUMAB [Suspect]
     Active Substance: NIVOLUMAB
     Indication: SQUAMOUS CELL CARCINOMA OF HEAD AND NECK
     Dosage: 160 MILLIGRAM, Q2WK
     Route: 042
     Dates: start: 20191011, end: 20191122

REACTIONS (2)
  - Malignant neoplasm progression [Fatal]
  - Prescribed underdose [Unknown]
